FAERS Safety Report 6895821-X (Version None)
Quarter: 2010Q3

REPORT INFORMATION
  Report Type: 
  Country: None (occurrence: None)
  Receive Date: 20100802
  Receipt Date: 20100624
  Transmission Date: 20110219
  Serious: Yes (Hospitalization)
  Sender: FDA-Public Use
  Company Number: AT-PFIZER INC-2010095778

PATIENT
  Age: 34 Year
  Sex: Female

DRUGS (2)
  1. TRAZODONE HCL [Suspect]
     Dosage: 150 MG, 1X/DAY
  2. SERTRALINE HYDROCHLORIDE [Suspect]
     Dosage: 50 MG, 2X/DAY

REACTIONS (3)
  - BLOOD ELECTROLYTES DECREASED [None]
  - ELECTROCARDIOGRAM QT PROLONGED [None]
  - VOMITING [None]
